FAERS Safety Report 26025530 (Version 1)
Quarter: 2025Q4

REPORT INFORMATION
  Report Type: Spontaneous
  Country: EU (occurrence: EU)
  Receive Date: 20251111
  Receipt Date: 20251111
  Transmission Date: 20260118
  Serious: Yes (Other)
  Sender: AUROBINDO
  Company Number: EU-AFSSAPS-LL2025001867

PATIENT
  Age: 2 Year
  Sex: Male

DRUGS (3)
  1. ALBUTEROL [Suspect]
     Active Substance: ALBUTEROL
     Indication: Muscular weakness
     Dosage: 9 MILLIGRAM, UNK
     Route: 064
     Dates: start: 20221016, end: 20230701
  2. MESTINON [Suspect]
     Active Substance: PYRIDOSTIGMINE BROMIDE
     Indication: Muscular weakness
     Dosage: 60 MG X4/J
     Route: 064
     Dates: start: 20221016, end: 20230701
  3. FIRDAPSE [Concomitant]
     Active Substance: AMIFAMPRIDINE PHOSPHATE
     Indication: Muscular weakness
     Dosage: UNK
     Route: 064
     Dates: start: 20221016, end: 20221216

REACTIONS (3)
  - Maternal exposure during pregnancy [Recovered/Resolved]
  - Bradycardia [Recovered/Resolved]
  - Term birth [Recovered/Resolved]

NARRATIVE: CASE EVENT DATE: 20221016
